APPROVED DRUG PRODUCT: LANOXIN
Active Ingredient: DIGOXIN
Strength: 0.25MG/ML
Dosage Form/Route: INJECTABLE;INJECTION
Application: N009330 | Product #002 | TE Code: AP
Applicant: COVIS PHARMA GMBH
Approved: Approved Prior to Jan 1, 1982 | RLD: Yes | RS: Yes | Type: RX